FAERS Safety Report 25155615 (Version 1)
Quarter: 2025Q2

REPORT INFORMATION
  Report Type: Spontaneous
  Country: KR (occurrence: KR)
  Receive Date: 20250403
  Receipt Date: 20250403
  Transmission Date: 20250716
  Serious: Yes (Death, Hospitalization, Other)
  Sender: ELI LILLY AND CO
  Company Number: KR-ELI_LILLY_AND_COMPANY-KR202503025628

PATIENT
  Age: 60 Year
  Sex: Female

DRUGS (6)
  1. VERZENIO [Suspect]
     Active Substance: ABEMACICLIB
     Indication: Product used for unknown indication
     Route: 065
     Dates: start: 20220107
  2. VERZENIO [Suspect]
     Active Substance: ABEMACICLIB
     Route: 065
     Dates: start: 20220204
  3. VERZENIO [Suspect]
     Active Substance: ABEMACICLIB
     Route: 065
     Dates: start: 20221020, end: 20241015
  4. FEMARA [Concomitant]
     Active Substance: LETROZOLE
     Indication: Product used for unknown indication
     Route: 065
     Dates: start: 20220107
  5. FEMARA [Concomitant]
     Active Substance: LETROZOLE
     Route: 065
     Dates: start: 20220204
  6. FEMARA [Concomitant]
     Active Substance: LETROZOLE
     Route: 065
     Dates: start: 20221020, end: 20241015

REACTIONS (5)
  - Death [Fatal]
  - Dyspnoea [Unknown]
  - Alanine aminotransferase increased [Unknown]
  - Blood lactate dehydrogenase increased [Unknown]
  - Aspartate aminotransferase increased [Unknown]

NARRATIVE: CASE EVENT DATE: 20220303
